FAERS Safety Report 10261957 (Version 1)
Quarter: 2014Q2

REPORT INFORMATION
  Report Type: Spontaneous
  Country: US (occurrence: US)
  Receive Date: 20140626
  Receipt Date: 20140626
  Transmission Date: 20141212
  Serious: No
  Sender: FDA-Public Use
  Company Number: US-MYLANLABS-2013S1010299

PATIENT
  Sex: Female

DRUGS (1)
  1. OMEPRAZOLE DELAYED-RELEASE CAPSULES, USP [Suspect]
     Route: 048
     Dates: start: 20130427, end: 20130507

REACTIONS (3)
  - Abdominal distension [Recovered/Resolved]
  - Musculoskeletal stiffness [Recovered/Resolved]
  - Dizziness [Recovered/Resolved]
